FAERS Safety Report 8680209 (Version 4)
Quarter: 2013Q3

REPORT INFORMATION
  Report Type: Report from Study
  Country: BR (occurrence: BR)
  Receive Date: 20120724
  Receipt Date: 20130802
  Transmission Date: 20140515
  Serious: Yes (Hospitalization, Other)
  Sender: FDA-Public Use
  Company Number: BR-ROCHE-669185

PATIENT
  Age: 35 Year
  Sex: Female
  Weight: 70 kg

DRUGS (31)
  1. MABTHERA [Suspect]
     Indication: SYSTEMIC LUPUS ERYTHEMATOSUS
     Dosage: DOSE: 1000 MG/ML. THIRD CYCLE: 1 INFUSION EVERY 15 DAYS, FORM INFUSION
     Route: 042
     Dates: start: 20080711, end: 200810
  2. MABTHERA [Suspect]
     Indication: RHEUMATOID ARTHRITIS
     Dosage: DOSE: 1000 MG/ML
     Route: 042
     Dates: start: 200906, end: 200906
  3. MABTHERA [Suspect]
     Dosage: DOSE: 1000 MG/ML, 1 INFUSION
     Route: 042
     Dates: start: 20100430, end: 20100516
  4. MABTHERA [Suspect]
     Route: 042
     Dates: start: 20100601, end: 20120601
  5. GARDENAL [Concomitant]
     Dosage: DAILY
     Route: 065
  6. CITALOPRAM [Concomitant]
     Indication: DEPRESSION
     Route: 065
  7. AZATHIOPRINE [Concomitant]
  8. HYDROXYCHLOROQUINE [Concomitant]
     Route: 065
  9. DORFLEX [Concomitant]
     Indication: HEADACHE
     Dosage: AS NEEDED
     Route: 065
  10. DORFLEX [Concomitant]
     Indication: PAIN
  11. RIVOTRIL [Concomitant]
     Route: 065
  12. NAPROXEN [Concomitant]
     Indication: HEADACHE
     Route: 065
  13. TRAMADOL [Concomitant]
     Indication: HEADACHE
     Route: 065
  14. CASSIA FISTULA [Concomitant]
     Indication: CONSTIPATION
     Dosage: DOSE: 1-2 CAPS, TAKEN DAILY
     Route: 048
  15. PANTOPRAZOLE [Concomitant]
  16. FLUNAZOL [Concomitant]
     Indication: HYPERSENSITIVITY
     Route: 065
  17. TOPIRAMATE [Concomitant]
     Dosage: RECEIVED 3 TIMES AT NIGHT
     Route: 065
  18. TOPIRAMATE [Concomitant]
     Route: 065
  19. SENE [Concomitant]
     Route: 065
  20. MIOSAN [Concomitant]
     Indication: HEADACHE
     Route: 065
  21. CHLOROQUINE HYDROCHLORIDE [Concomitant]
     Route: 065
  22. FLUOXETINE [Concomitant]
     Route: 065
  23. NEOZINE [Concomitant]
     Route: 065
  24. FRUSEMIDE [Concomitant]
     Route: 065
  25. CORIANDRUM SATIVUM [Concomitant]
     Indication: CONSTIPATION
     Dosage: DOSE: 1-2 CAPS, TAKEN DAILY
     Route: 048
  26. SENNA [Concomitant]
     Indication: CONSTIPATION
     Dosage: DOSE: 1-2 CAPS, TAKEN DAILY
     Route: 048
  27. TAMARINDUS INDICA [Concomitant]
     Indication: CONSTIPATION
     Dosage: DOSE: 1-2 CAPS, TAKEN DAILY
     Route: 048
  28. RIVOTRIL [Concomitant]
     Route: 065
  29. PHENOBARBITAL [Concomitant]
     Route: 065
  30. DIPYRONE [Concomitant]
     Indication: PAIN
     Dosage: AS NEEDED
     Route: 065
  31. PREDNISONE [Concomitant]

REACTIONS (30)
  - Hydrocephalus [Recovered/Resolved]
  - Headache [Recovered/Resolved]
  - Alopecia [Recovering/Resolving]
  - Ill-defined disorder [Unknown]
  - Hydrocephalus [Unknown]
  - Convulsion [Not Recovered/Not Resolved]
  - Weight decreased [Not Recovered/Not Resolved]
  - Intervertebral disc protrusion [Unknown]
  - Therapeutic response decreased [Not Recovered/Not Resolved]
  - Neck pain [Unknown]
  - Arthralgia [Not Recovered/Not Resolved]
  - Depression [Unknown]
  - Temporomandibular joint syndrome [Not Recovered/Not Resolved]
  - Urinary tract infection [Unknown]
  - Psychiatric symptom [Not Recovered/Not Resolved]
  - Diplopia [Unknown]
  - Headache [Not Recovered/Not Resolved]
  - Local swelling [Unknown]
  - Weight decreased [Not Recovered/Not Resolved]
  - Erythema [Recovered/Resolved]
  - Malaise [Unknown]
  - Nausea [Not Recovered/Not Resolved]
  - Pain [Not Recovered/Not Resolved]
  - Erythema [Not Recovered/Not Resolved]
  - Hypersensitivity [Unknown]
  - Nausea [Recovered/Resolved]
  - Vomiting [Recovered/Resolved]
  - Arthralgia [Not Recovered/Not Resolved]
  - Arthralgia [Unknown]
  - Headache [Unknown]
